FAERS Safety Report 5801269-9 (Version None)
Quarter: 2008Q3

REPORT INFORMATION
  Report Type: 
  Country: None (occurrence: None)
  Receive Date: 20080703
  Receipt Date: 20080703
  Transmission Date: 20090109
  Serious: Yes (Life-Threatening, Hospitalization, Disabling)
  Sender: FDA-Public Use
  Company Number: None

PATIENT
  Age: 68 Year
  Sex: Female
  Weight: 68.0396 kg

DRUGS (1)
  1. DIGITEK 250MG STERICYCLE MYLIN ACTIVIST [Suspect]
     Indication: CARDIAC DISORDER
     Dosage: 250MG 1XDAILY
     Dates: start: 20060301, end: 20080507

REACTIONS (1)
  - HEART RATE IRREGULAR [None]
